FAERS Safety Report 25857095 (Version 2)
Quarter: 2025Q4

REPORT INFORMATION
  Report Type: Spontaneous
  Country: US (occurrence: US)
  Receive Date: 20250929
  Receipt Date: 20251020
  Transmission Date: 20260117
  Serious: No
  Sender: LEO PHARM
  Company Number: US-LEO Pharma-383126

PATIENT
  Age: 56 Year
  Sex: Female

DRUGS (1)
  1. ADBRY [Suspect]
     Active Substance: TRALOKINUMAB-LDRM
     Indication: Product used for unknown indication
     Dosage: HCP DISCONTINUED ADBRY IN SEP-2025
     Route: 058
     Dates: start: 202405, end: 202509

REACTIONS (1)
  - Drug ineffective [Unknown]
